FAERS Safety Report 4719252-3 (Version None)
Quarter: 2005Q3

REPORT INFORMATION
  Report Type: 
  Country: None (occurrence: None)
  Receive Date: 20050718
  Receipt Date: 20050324
  Transmission Date: 20060218
  Serious: No
  Sender: FDA-Public Use
  Company Number: 2005000623

PATIENT

DRUGS (1)
  1. TARCEVA [Suspect]
     Dosage: UNK (QD), ORAL
     Route: 048

REACTIONS (2)
  - PAIN IN JAW [None]
  - TOOTHACHE [None]
